FAERS Safety Report 5160707-8 (Version None)
Quarter: 2006Q4

REPORT INFORMATION
  Report Type: 
  Country: None (occurrence: None)
  Receive Date: 20060918
  Receipt Date: 20060804
  Transmission Date: 20070319
  Serious: Yes (Hospitalization)
  Sender: FDA-Public Use
  Company Number: US-JNJFOC-20060200399

PATIENT
  Age: 32 Year
  Sex: Female
  Weight: 81.6 kg

DRUGS (3)
  1. ORTHO EVRA [Suspect]
     Indication: DRUG USE FOR UNKNOWN INDICATION
     Dosage: TRANSDERMAL
     Route: 062
     Dates: start: 20040301, end: 20050301
  2. HYDROXYCUT (GENERAL NUTRIENTS) [Concomitant]
  3. MULTIVITAMIN [Concomitant]

REACTIONS (3)
  - DEEP VEIN THROMBOSIS [None]
  - HYPERTENSION [None]
  - PULMONARY EMBOLISM [None]
